FAERS Safety Report 15890605 (Version 1)
Quarter: 2019Q1

REPORT INFORMATION
  Report Type: Spontaneous
  Country: JP (occurrence: JP)
  Receive Date: 20190130
  Receipt Date: 20190130
  Transmission Date: 20190417
  Serious: Yes (Other)
  Sender: FDA-Public Use
  Company Number: JP-CASPER PHARMA LLC-2018CAS000304

PATIENT
  Age: 78 Year
  Sex: Male
  Weight: 35 kg

DRUGS (6)
  1. ATROPINE. [Suspect]
     Active Substance: ATROPINE
     Indication: NEUROMUSCULAR BLOCKADE REVERSAL
     Dosage: 0.5 MILLIGRAM
     Route: 042
  2. PANCURONIUM [Concomitant]
     Active Substance: PANCURONIUM
     Dosage: 4 MILLIGRAM
     Route: 065
  3. GLYCOPYRROLATE. [Suspect]
     Active Substance: GLYCOPYRROLATE
     Indication: NEUROMUSCULAR BLOCKADE REVERSAL
     Dosage: UNK
     Route: 065
  4. NEOSTIGMINE. [Suspect]
     Active Substance: NEOSTIGMINE METHYLSULFATE
     Indication: NEUROMUSCULAR BLOCKADE REVERSAL
     Dosage: 1 MILLIGRAM
     Route: 042
  5. THIOPENTAL [Concomitant]
     Active Substance: THIOPENTAL
     Dosage: 75 MILLIGRAM
     Route: 065
  6. FENTANYL. [Concomitant]
     Active Substance: FENTANYL
     Dosage: 0.1 MILLIGRAM
     Route: 065

REACTIONS (2)
  - Atrioventricular block second degree [Unknown]
  - Product use in unapproved indication [Unknown]
